FAERS Safety Report 8901280 (Version 1)
Quarter: 2012Q4

REPORT INFORMATION
  Report Type: Report from Study
  Country: US (occurrence: US)
  Receive Date: 20121108
  Receipt Date: 20121108
  Transmission Date: 20130627
  Serious: Yes (Other)
  Sender: FDA-Public Use
  Company Number: US-VERTEX PHARMACEUTICAL INC.-2012-024271

PATIENT
  Sex: Female

DRUGS (1)
  1. VX-950 [Suspect]
     Indication: HEPATITIS C
     Dosage: 2 tabs, tid
     Dates: end: 20121022

REACTIONS (2)
  - Crohn^s disease [Unknown]
  - Diarrhoea [Unknown]
